FAERS Safety Report 6121723-2 (Version None)
Quarter: 2009Q1

REPORT INFORMATION
  Report Type: 
  Country: None (occurrence: None)
  Receive Date: 20090317
  Receipt Date: 20090306
  Transmission Date: 20090719
  Serious: Yes (Hospitalization, Other)
  Sender: FDA-Public Use
  Company Number: US-PFIZER INC-2006008372

PATIENT
  Sex: Female
  Weight: 57.6 kg

DRUGS (12)
  1. LIPITOR [Suspect]
     Route: 048
  2. NORVASC [Suspect]
     Route: 065
  3. LOPID [Suspect]
     Route: 065
  4. MEVACOR [Suspect]
     Indication: BLOOD CHOLESTEROL INCREASED
     Route: 065
  5. ZOCOR [Suspect]
     Indication: BLOOD CHOLESTEROL INCREASED
     Route: 065
  6. TOPROL-XL [Concomitant]
     Route: 065
  7. LASIX [Concomitant]
     Route: 065
  8. POTASSIUM CHLORIDE [Concomitant]
     Route: 065
  9. ENALAPRIL [Concomitant]
     Route: 065
  10. VITAMINS [Concomitant]
     Route: 065
  11. ASPIRIN [Concomitant]
     Route: 065
  12. NEURONTIN [Concomitant]

REACTIONS (23)
  - ABDOMINAL DISTENSION [None]
  - ABDOMINAL RIGIDITY [None]
  - ARRHYTHMIA [None]
  - CARDIAC OPERATION [None]
  - DEAFNESS [None]
  - DEHYDRATION [None]
  - DIARRHOEA [None]
  - DRUG INEFFECTIVE [None]
  - FATIGUE [None]
  - GAIT DISTURBANCE [None]
  - GALLBLADDER OPERATION [None]
  - HEPATIC ENZYME INCREASED [None]
  - INFLUENZA [None]
  - IRRITABLE BOWEL SYNDROME [None]
  - LARYNGITIS [None]
  - LETHARGY [None]
  - LOW DENSITY LIPOPROTEIN INCREASED [None]
  - PAIN IN EXTREMITY [None]
  - PNEUMONIA [None]
  - SWELLING [None]
  - TACHYCARDIA [None]
  - VOMITING [None]
  - WRONG TECHNIQUE IN DRUG USAGE PROCESS [None]
